FAERS Safety Report 25143938 (Version 1)
Quarter: 2025Q2

REPORT INFORMATION
  Report Type: Spontaneous
  Country: CA (occurrence: CA)
  Receive Date: 20250401
  Receipt Date: 20250401
  Transmission Date: 20250716
  Serious: Yes (Other)
  Sender: TEVA
  Company Number: CA-TEVA-VS-3316392

PATIENT
  Age: 41 Year
  Sex: Female

DRUGS (131)
  1. AMOXICILLIN TRIHYDRATE [Suspect]
     Active Substance: AMOXICILLIN
     Indication: Product used for unknown indication
     Route: 065
  2. AMOXICILLIN TRIHYDRATE [Suspect]
     Active Substance: AMOXICILLIN
     Indication: Product used for unknown indication
     Route: 065
  3. PROPRANOLOL [Suspect]
     Active Substance: PROPRANOLOL HYDROCHLORIDE
     Indication: Migraine
     Route: 065
  4. RABEPRAZOLE [Suspect]
     Active Substance: RABEPRAZOLE
     Indication: Migraine
     Route: 065
  5. RABEPRAZOLE [Suspect]
     Active Substance: RABEPRAZOLE
     Indication: Migraine
     Route: 065
  6. RABEPRAZOLE [Suspect]
     Active Substance: RABEPRAZOLE
     Indication: Migraine
     Route: 065
  7. RABEPRAZOLE [Suspect]
     Active Substance: RABEPRAZOLE
     Indication: Migraine
     Route: 065
  8. RABEPRAZOLE [Suspect]
     Active Substance: RABEPRAZOLE
     Indication: Migraine
     Route: 065
  9. RABEPRAZOLE [Suspect]
     Active Substance: RABEPRAZOLE
     Indication: Migraine
     Route: 065
  10. RABEPRAZOLE [Suspect]
     Active Substance: RABEPRAZOLE
     Indication: Migraine
     Route: 065
  11. RABEPRAZOLE [Suspect]
     Active Substance: RABEPRAZOLE
     Indication: Migraine
     Route: 065
  12. RABEPRAZOLE [Suspect]
     Active Substance: RABEPRAZOLE
     Indication: Migraine
     Route: 065
  13. RABEPRAZOLE [Suspect]
     Active Substance: RABEPRAZOLE
     Indication: Migraine
     Route: 065
  14. RABEPRAZOLE [Suspect]
     Active Substance: RABEPRAZOLE
     Indication: Migraine
     Route: 065
  15. RABEPRAZOLE [Suspect]
     Active Substance: RABEPRAZOLE
     Indication: Migraine
     Route: 065
  16. RABEPRAZOLE [Suspect]
     Active Substance: RABEPRAZOLE
     Indication: Migraine
     Route: 065
  17. RABEPRAZOLE [Suspect]
     Active Substance: RABEPRAZOLE
     Indication: Migraine
     Route: 065
  18. RABEPRAZOLE [Suspect]
     Active Substance: RABEPRAZOLE
     Indication: Migraine
     Route: 065
  19. RABEPRAZOLE [Suspect]
     Active Substance: RABEPRAZOLE
     Indication: Migraine
     Route: 065
  20. RABEPRAZOLE [Suspect]
     Active Substance: RABEPRAZOLE
     Indication: Migraine
     Route: 065
  21. RABEPRAZOLE [Suspect]
     Active Substance: RABEPRAZOLE
     Indication: Migraine
     Route: 065
  22. RABEPRAZOLE [Suspect]
     Active Substance: RABEPRAZOLE
     Indication: Migraine
     Route: 065
  23. RABEPRAZOLE [Suspect]
     Active Substance: RABEPRAZOLE
     Indication: Migraine
     Route: 065
  24. FLUOXETINE HYDROCHLORIDE [Concomitant]
     Active Substance: FLUOXETINE HYDROCHLORIDE
     Indication: Product used for unknown indication
     Route: 065
  25. CLOTRIMAZOLE\FLUCONAZOLE [Suspect]
     Active Substance: CLOTRIMAZOLE\FLUCONAZOLE
     Indication: Product used for unknown indication
     Route: 065
  26. ESCITALOPRAM OXALATE [Suspect]
     Active Substance: ESCITALOPRAM OXALATE
     Indication: Product used for unknown indication
     Route: 065
  27. INDOMETHACIN [Suspect]
     Active Substance: INDOMETHACIN
     Indication: Migraine
     Route: 054
  28. INDOMETHACIN [Suspect]
     Active Substance: INDOMETHACIN
     Indication: Migraine
     Route: 054
  29. INDOMETHACIN [Suspect]
     Active Substance: INDOMETHACIN
     Indication: Migraine
     Route: 054
  30. INDOMETHACIN [Suspect]
     Active Substance: INDOMETHACIN
     Indication: Migraine
     Route: 054
  31. INDOMETHACIN [Suspect]
     Active Substance: INDOMETHACIN
     Indication: Migraine
     Route: 065
  32. INDOMETHACIN [Suspect]
     Active Substance: INDOMETHACIN
     Indication: Migraine
     Route: 054
  33. INDOMETHACIN [Suspect]
     Active Substance: INDOMETHACIN
     Indication: Migraine
     Route: 054
  34. INDOMETHACIN [Suspect]
     Active Substance: INDOMETHACIN
     Indication: Migraine
     Route: 054
  35. INDOMETHACIN [Suspect]
     Active Substance: INDOMETHACIN
     Indication: Migraine
     Route: 054
  36. INDOMETHACIN [Suspect]
     Active Substance: INDOMETHACIN
     Indication: Migraine
     Route: 054
  37. INDOMETHACIN [Suspect]
     Active Substance: INDOMETHACIN
     Indication: Migraine
     Route: 054
  38. INDOMETHACIN [Suspect]
     Active Substance: INDOMETHACIN
     Indication: Migraine
     Route: 054
  39. INDOMETHACIN [Suspect]
     Active Substance: INDOMETHACIN
     Indication: Migraine
     Route: 054
  40. INDOMETHACIN [Suspect]
     Active Substance: INDOMETHACIN
     Indication: Migraine
     Route: 054
  41. INDOMETHACIN [Suspect]
     Active Substance: INDOMETHACIN
     Indication: Migraine
     Route: 054
  42. INDOMETHACIN [Suspect]
     Active Substance: INDOMETHACIN
     Indication: Migraine
     Route: 054
  43. INDOMETHACIN [Suspect]
     Active Substance: INDOMETHACIN
     Indication: Migraine
     Route: 054
  44. INDOMETHACIN [Suspect]
     Active Substance: INDOMETHACIN
     Indication: Migraine
     Route: 054
  45. INDOMETHACIN [Suspect]
     Active Substance: INDOMETHACIN
     Indication: Migraine
     Route: 054
  46. INDOMETHACIN [Suspect]
     Active Substance: INDOMETHACIN
     Indication: Migraine
     Route: 054
  47. INDOMETHACIN [Suspect]
     Active Substance: INDOMETHACIN
     Indication: Migraine
     Route: 054
  48. INDOMETHACIN [Suspect]
     Active Substance: INDOMETHACIN
     Indication: Migraine
     Route: 054
  49. INDOMETHACIN [Suspect]
     Active Substance: INDOMETHACIN
     Indication: Migraine
     Route: 054
  50. INDOMETHACIN [Suspect]
     Active Substance: INDOMETHACIN
     Indication: Migraine
     Route: 054
  51. INDOMETHACIN [Suspect]
     Active Substance: INDOMETHACIN
     Indication: Migraine
     Route: 054
  52. LANSOPRAZOLE [Suspect]
     Active Substance: LANSOPRAZOLE
     Indication: Migraine
     Route: 065
  53. MOMETASONE FUROATE [Suspect]
     Active Substance: MOMETASONE FUROATE
     Indication: Product used for unknown indication
     Route: 065
  54. MOMETASONE FUROATE [Suspect]
     Active Substance: MOMETASONE FUROATE
     Indication: Product used for unknown indication
     Route: 065
  55. ACETAMINOPHEN [Suspect]
     Active Substance: ACETAMINOPHEN
     Indication: Product used for unknown indication
     Route: 065
  56. CYMBALTA [Concomitant]
     Active Substance: DULOXETINE HYDROCHLORIDE
     Indication: Product used for unknown indication
     Route: 065
  57. MACROBID [Concomitant]
     Active Substance: NITROFURANTOIN\NITROFURANTOIN MONOHYDRATE
     Indication: Product used for unknown indication
     Route: 065
  58. VENLAFAXINE HYDROCHLORIDE [Suspect]
     Active Substance: VENLAFAXINE HYDROCHLORIDE
     Indication: Product used for unknown indication
     Route: 065
  59. ZESTRIL [Suspect]
     Active Substance: LISINOPRIL
     Indication: Product used for unknown indication
     Route: 048
  60. ZESTRIL [Suspect]
     Active Substance: LISINOPRIL
     Indication: Product used for unknown indication
     Route: 048
  61. ZESTRIL [Suspect]
     Active Substance: LISINOPRIL
     Indication: Product used for unknown indication
     Route: 065
  62. TOPIRAMATE [Suspect]
     Active Substance: TOPIRAMATE
     Indication: Migraine
     Route: 065
  63. PREDNISONE [Suspect]
     Active Substance: PREDNISONE
     Indication: Product used for unknown indication
     Route: 065
  64. PREDNISONE [Suspect]
     Active Substance: PREDNISONE
     Indication: Product used for unknown indication
     Route: 065
  65. MORPHINE SULFATE [Concomitant]
     Active Substance: MORPHINE SULFATE
     Indication: Product used for unknown indication
     Route: 065
  66. METOCLOPRAMIDE [Suspect]
     Active Substance: METOCLOPRAMIDE
     Indication: Migraine
     Route: 065
  67. FLUTICASONE PROPIONATE [Concomitant]
     Active Substance: FLUTICASONE PROPIONATE
     Indication: Product used for unknown indication
     Route: 065
  68. SUMATRIPTAN SUCCINATE [Suspect]
     Active Substance: SUMATRIPTAN SUCCINATE
     Indication: Migraine
     Route: 065
  69. DEXAMETHASONE [Suspect]
     Active Substance: DEXAMETHASONE
     Indication: Migraine
     Route: 065
  70. FROVATRIPTAN [Concomitant]
     Active Substance: FROVATRIPTAN
     Indication: Product used for unknown indication
     Route: 065
  71. SCOPOLAMINE HYDROBROMIDE [Suspect]
     Active Substance: SCOPOLAMINE HYDROBROMIDE
     Indication: Migraine
     Route: 065
  72. SERTRALINE HYDROCHLORIDE [Suspect]
     Active Substance: SERTRALINE HYDROCHLORIDE
     Indication: Migraine
     Route: 065
  73. NAPROXEN [Concomitant]
     Active Substance: NAPROXEN
     Indication: Product used for unknown indication
     Route: 065
  74. MACROGOL?3350 [Concomitant]
     Indication: Product used for unknown indication
     Route: 065
  75. CODEINE [Suspect]
     Active Substance: CODEINE
     Indication: Migraine
     Route: 065
  76. SULFADIAZINE\TRIMETHOPRIM [Concomitant]
     Active Substance: SULFADIAZINE\TRIMETHOPRIM
     Indication: Product used for unknown indication
     Route: 065
  77. ESOMEPRAZOLE MAGNESIUM [Suspect]
     Active Substance: ESOMEPRAZOLE MAGNESIUM
     Indication: Product used for unknown indication
     Route: 065
  78. AZITHROMYCIN [Suspect]
     Active Substance: AZITHROMYCIN
     Indication: Migraine
     Route: 065
  79. DULOXETINE HYDROCHLORIDE [Suspect]
     Active Substance: DULOXETINE HYDROCHLORIDE
     Indication: Migraine
     Route: 065
  80. DANAZOL [Concomitant]
     Active Substance: DANAZOL
     Indication: Product used for unknown indication
     Route: 065
  81. ALBUTEROL [Suspect]
     Active Substance: ALBUTEROL
     Indication: Product used for unknown indication
     Route: 065
  82. ACETAMINOPHEN\TRAMADOL HYDROCHLORIDE [Suspect]
     Active Substance: ACETAMINOPHEN\TRAMADOL HYDROCHLORIDE
     Indication: Product used for unknown indication
     Route: 065
  83. FERROUS FUMARATE [Concomitant]
     Active Substance: FERROUS FUMARATE
     Indication: Product used for unknown indication
     Route: 065
  84. CEFUROXIME SODIUM [Concomitant]
     Active Substance: CEFUROXIME SODIUM
     Indication: Product used for unknown indication
     Route: 065
  85. CEPHALEXIN [Concomitant]
     Active Substance: CEPHALEXIN
     Indication: Product used for unknown indication
     Route: 065
  86. PANTOPRAZOLE SODIUM ANHYDROUS [Concomitant]
     Active Substance: PANTOPRAZOLE SODIUM ANHYDROUS
     Indication: Product used for unknown indication
     Route: 065
  87. METOCLOPRAMIDE [Concomitant]
     Active Substance: METOCLOPRAMIDE
     Indication: Product used for unknown indication
     Route: 065
  88. CIPROFLOXACIN LACTATE [Suspect]
     Active Substance: CIPROFLOXACIN LACTATE
     Indication: Migraine
     Route: 065
  89. METRONIDAZOLE [Concomitant]
     Active Substance: METRONIDAZOLE
     Indication: Product used for unknown indication
     Route: 065
  90. OSELTAMIVIR PHOSPHATE [Concomitant]
     Active Substance: OSELTAMIVIR PHOSPHATE
     Indication: Product used for unknown indication
     Route: 065
  91. BOTULINUM TOXIN TYPE A [Suspect]
     Active Substance: BOTULINUM TOXIN TYPE A
     Indication: Product used for unknown indication
     Route: 065
  92. BOTULINUM TOXIN TYPE A [Suspect]
     Active Substance: BOTULINUM TOXIN TYPE A
     Indication: Product used for unknown indication
     Route: 065
  93. BOTULINUM TOXIN TYPE A [Suspect]
     Active Substance: BOTULINUM TOXIN TYPE A
     Indication: Product used for unknown indication
     Route: 065
  94. BOTULINUM TOXIN TYPE A [Suspect]
     Active Substance: BOTULINUM TOXIN TYPE A
     Indication: Product used for unknown indication
     Route: 065
  95. BOTULINUM TOXIN TYPE A [Suspect]
     Active Substance: BOTULINUM TOXIN TYPE A
     Indication: Product used for unknown indication
     Route: 065
  96. BOTULINUM TOXIN TYPE A [Suspect]
     Active Substance: BOTULINUM TOXIN TYPE A
     Indication: Product used for unknown indication
     Route: 065
  97. HYDROMORPHONE [Suspect]
     Active Substance: HYDROMORPHONE
     Indication: Migraine
     Route: 065
  98. HYDROMORPHONE [Suspect]
     Active Substance: HYDROMORPHONE
     Indication: Migraine
     Route: 065
  99. HYDROMORPHONE [Suspect]
     Active Substance: HYDROMORPHONE
     Indication: Migraine
     Route: 065
  100. HYDROMORPHONE [Suspect]
     Active Substance: HYDROMORPHONE
     Indication: Migraine
     Route: 065
  101. HYDROMORPHONE [Suspect]
     Active Substance: HYDROMORPHONE
     Indication: Migraine
     Route: 065
  102. HYDROMORPHONE [Suspect]
     Active Substance: HYDROMORPHONE
     Indication: Migraine
     Route: 065
  103. HYDROMORPHONE [Suspect]
     Active Substance: HYDROMORPHONE
     Indication: Migraine
     Route: 065
  104. HYDROMORPHONE [Suspect]
     Active Substance: HYDROMORPHONE
     Indication: Migraine
     Route: 065
  105. HYDROMORPHONE [Suspect]
     Active Substance: HYDROMORPHONE
     Indication: Migraine
     Route: 065
  106. HYDROMORPHONE [Suspect]
     Active Substance: HYDROMORPHONE
     Indication: Migraine
     Route: 065
  107. HYDROMORPHONE [Suspect]
     Active Substance: HYDROMORPHONE
     Indication: Migraine
     Route: 065
  108. ZOLMITRIPTAN [Suspect]
     Active Substance: ZOLMITRIPTAN
     Indication: Product used for unknown indication
     Route: 048
  109. ZOPICLONE [Suspect]
     Active Substance: ZOPICLONE
     Indication: Migraine
     Route: 065
  110. ZOPICLONE [Suspect]
     Active Substance: ZOPICLONE
     Indication: Migraine
     Route: 065
  111. ZOPICLONE [Suspect]
     Active Substance: ZOPICLONE
     Indication: Migraine
     Route: 065
  112. ZOPICLONE [Suspect]
     Active Substance: ZOPICLONE
     Indication: Migraine
     Route: 065
  113. ZOPICLONE [Suspect]
     Active Substance: ZOPICLONE
     Indication: Migraine
     Route: 065
  114. ZOPICLONE [Suspect]
     Active Substance: ZOPICLONE
     Indication: Migraine
     Route: 065
  115. ZOPICLONE [Suspect]
     Active Substance: ZOPICLONE
     Indication: Migraine
     Route: 065
  116. ZOPICLONE [Suspect]
     Active Substance: ZOPICLONE
     Indication: Migraine
     Route: 065
  117. ZOPICLONE [Suspect]
     Active Substance: ZOPICLONE
     Indication: Migraine
     Route: 065
  118. ZOPICLONE [Suspect]
     Active Substance: ZOPICLONE
     Indication: Migraine
     Route: 065
  119. ZOPICLONE [Suspect]
     Active Substance: ZOPICLONE
     Indication: Migraine
     Route: 065
  120. ZOPICLONE [Suspect]
     Active Substance: ZOPICLONE
     Indication: Migraine
     Route: 065
  121. ZOPICLONE [Suspect]
     Active Substance: ZOPICLONE
     Indication: Migraine
     Route: 065
  122. ZOPICLONE [Suspect]
     Active Substance: ZOPICLONE
     Indication: Migraine
     Route: 065
  123. ZOPICLONE [Suspect]
     Active Substance: ZOPICLONE
     Indication: Migraine
     Route: 065
  124. ZOPICLONE [Suspect]
     Active Substance: ZOPICLONE
     Indication: Migraine
     Route: 065
  125. ZOPICLONE [Suspect]
     Active Substance: ZOPICLONE
     Indication: Migraine
     Route: 065
  126. MAXALT [Suspect]
     Active Substance: RIZATRIPTAN BENZOATE
     Indication: Migraine
     Route: 065
  127. MAXALT [Suspect]
     Active Substance: RIZATRIPTAN BENZOATE
     Indication: Migraine
     Route: 065
  128. MAXALT [Suspect]
     Active Substance: RIZATRIPTAN BENZOATE
     Indication: Migraine
     Route: 065
  129. CLARITHROMYCIN [Suspect]
     Active Substance: CLARITHROMYCIN
     Indication: Product used for unknown indication
     Route: 065
  130. CLARITHROMYCIN [Suspect]
     Active Substance: CLARITHROMYCIN
     Indication: Product used for unknown indication
     Route: 065
  131. TRIMETHOPRIM [Suspect]
     Active Substance: TRIMETHOPRIM
     Indication: Product used for unknown indication
     Route: 065

REACTIONS (8)
  - Angioedema [Unknown]
  - Swollen tongue [Unknown]
  - Off label use [Unknown]
  - Dysphonia [Unknown]
  - Hypersensitivity [Unknown]
  - Swelling face [Unknown]
  - Headache [Unknown]
  - Drug intolerance [Unknown]
